FAERS Safety Report 4810932-8 (Version None)
Quarter: 2005Q4

REPORT INFORMATION
  Report Type: 
  Country: None (occurrence: None)
  Receive Date: 20051025
  Receipt Date: 20051012
  Transmission Date: 20060501
  Serious: Yes (Other)
  Sender: FDA-Public Use
  Company Number: 2005135804

PATIENT
  Sex: Female

DRUGS (2)
  1. DETROL LA [Suspect]
     Indication: HYPERTONIC BLADDER
     Dosage: 4 MG (4 MG, 1 IN 1 D), ORAL
     Route: 048
     Dates: start: 20050101
  2. DETROL LA [Suspect]

REACTIONS (10)
  - BLOOD POTASSIUM DECREASED [None]
  - DEHYDRATION [None]
  - DIZZINESS [None]
  - DRUG EFFECT DECREASED [None]
  - INFECTION [None]
  - LOSS OF CONSCIOUSNESS [None]
  - MALNUTRITION [None]
  - POOR QUALITY DRUG ADMINISTERED [None]
  - PROTEIN TOTAL DECREASED [None]
  - SURGERY [None]
